FAERS Safety Report 10283873 (Version 1)
Quarter: 2014Q3

REPORT INFORMATION
  Report Type: Report from Study
  Country: DE (occurrence: CL)
  Receive Date: 20140708
  Receipt Date: 20140708
  Transmission Date: 20150326
  Serious: Yes (Hospitalization, Other)
  Sender: FDA-Public Use
  Company Number: DE-ACTELION-A-US2014-101330

PATIENT
  Age: 45 Year
  Sex: Female

DRUGS (8)
  1. L-ARGININE HCL [Concomitant]
     Dosage: UNK
  2. VESNIDAN [Concomitant]
     Dosage: UNK
  3. TRACLEER [Suspect]
     Active Substance: BOSENTAN\BOSENTAN MONOHYDRATE
     Indication: PULMONARY ARTERIAL HYPERTENSION
     Dosage: UNK
     Route: 048
  4. SILDENAFIL [Concomitant]
     Active Substance: SILDENAFIL
     Dosage: UNK
  5. OXYGEN. [Concomitant]
     Active Substance: OXYGEN
     Dosage: UNK
  6. ACENOCOUMAROL [Concomitant]
     Active Substance: ACENOCOUMAROL
     Dosage: UNK
  7. SPIRONOLACTONE. [Concomitant]
     Active Substance: SPIRONOLACTONE
     Dosage: UNK
  8. VENTAVIS [Suspect]
     Active Substance: ILOPROST
     Indication: PULMONARY ARTERIAL HYPERTENSION
     Dosage: 0.5 CC EACH 3 HOURS
     Route: 055
     Dates: start: 20130712

REACTIONS (7)
  - Anaemia [Recovering/Resolving]
  - Drug administration error [Unknown]
  - Dyspnoea [Unknown]
  - Chest pain [Unknown]
  - Syncope [Unknown]
  - Pulmonary hypertension [Unknown]
  - Hypotension [Unknown]

NARRATIVE: CASE EVENT DATE: 20140526
